FAERS Safety Report 6811400-4 (Version None)
Quarter: 2010Q2

REPORT INFORMATION
  Report Type: 
  Country: None (occurrence: None)
  Receive Date: 20100630
  Receipt Date: 20100507
  Transmission Date: 20101027
  Serious: No
  Sender: FDA-Public Use
  Company Number: US-AMGEN-KDL411775

PATIENT
  Sex: Male
  Weight: 90.8 kg

DRUGS (1)
  1. PROCRIT [Suspect]
     Indication: ANAEMIA
     Dates: start: 20090101

REACTIONS (2)
  - HAEMOGLOBIN DECREASED [None]
  - WEIGHT DECREASED [None]
